FAERS Safety Report 5037590-4 (Version None)
Quarter: 2006Q2

REPORT INFORMATION
  Report Type: 
  Country: None (occurrence: None)
  Receive Date: 20060626
  Receipt Date: 20060613
  Transmission Date: 20061013
  Serious: Yes (Life-Threatening)
  Sender: FDA-Public Use
  Company Number: T200600150

PATIENT
  Age: 51 Year
  Sex: Male

DRUGS (4)
  1. OPTIRAY 320 [Suspect]
     Indication: COMPUTERISED TOMOGRAM ABDOMEN
     Dosage: 100 ML, SINGLE, INTRAVENOUS
     Route: 042
     Dates: start: 20060331, end: 20060331
  2. ASPIRIN [Concomitant]
  3. AMLODIPINE BESYLATE [Concomitant]
  4. CARVEDILOL [Concomitant]

REACTIONS (5)
  - GENERALISED ERYTHEMA [None]
  - IODINE ALLERGY [None]
  - LOSS OF CONSCIOUSNESS [None]
  - OEDEMA PERIPHERAL [None]
  - URTICARIA GENERALISED [None]
